FAERS Safety Report 10068313 (Version 3)
Quarter: 2014Q2

REPORT INFORMATION
  Report Type: Spontaneous
  Country: US (occurrence: US)
  Receive Date: 20140409
  Receipt Date: 20140526
  Transmission Date: 20141212
  Serious: No
  Sender: FDA-Public Use
  Company Number: US-PFIZER INC-2014097065

PATIENT
  Age: 69 Year
  Sex: Female
  Weight: 70.3 kg

DRUGS (3)
  1. PREMPRO [Suspect]
     Dosage: (ESTROGENS CONJUGATED 0.03MG , MEDROXYPROGESTERONE ACETATE 1.5MG), DAILY
     Dates: start: 1994, end: 2014
  2. PREMPRO [Suspect]
     Dosage: (ESTROGENS CONJUGATED 0.03MG , MEDROXYPROGESTERONE ACETATE 1.5MG), DAILY
  3. CYMBALTA [Concomitant]
     Indication: FIBROMYALGIA
     Dosage: 60 MG, DAILY

REACTIONS (9)
  - Abdominal pain upper [Recovering/Resolving]
  - Hot flush [Recovering/Resolving]
  - Swelling [Recovering/Resolving]
  - Back pain [Recovering/Resolving]
  - Sleep disorder [Recovering/Resolving]
  - Fluid retention [Recovering/Resolving]
  - Feeling abnormal [Unknown]
  - Pre-existing condition improved [Unknown]
  - Therapeutic response changed [Unknown]
